FAERS Safety Report 4566540-X (Version None)
Quarter: 2005Q1

REPORT INFORMATION
  Report Type: 
  Country: None (occurrence: None)
  Receive Date: 20050126
  Receipt Date: 20050126
  Transmission Date: 20050727
  Serious: Yes (Life-Threatening, Hospitalization)
  Sender: FDA-Public Use
  Company Number: None

PATIENT
  Age: 75 Year
  Sex: Female
  Weight: 65.7716 kg

DRUGS (1)
  1. BEXTRA [Suspect]
     Indication: ARTHRALGIA
     Dosage: 1 TABLET A DAY 20 MG
     Dates: start: 20040601, end: 20040801

REACTIONS (2)
  - MYOCARDIAL INFARCTION [None]
  - SELF-MEDICATION [None]
